FAERS Safety Report 9176709 (Version 1)
Quarter: 2013Q1

REPORT INFORMATION
  Report Type: Spontaneous
  Country: IT (occurrence: None)
  Receive Date: 20130319
  Receipt Date: 20130319
  Transmission Date: 20140127
  Serious: Yes (Other)
  Sender: FDA-Public Use
  Company Number: 1627227

PATIENT
  Age: 82 Year
  Sex: Female

DRUGS (2)
  1. CEFOTAXIME SODIUM [Suspect]
     Indication: BRONCHOPNEUMONIA
     Route: 042
     Dates: start: 20130215, end: 20130216
  2. CLARITROMICINA [Suspect]
     Indication: BRONCHOPNEUMONIA
     Route: 048
     Dates: start: 20130215, end: 20130216

REACTIONS (2)
  - Erythema [None]
  - Pruritus [None]
